FAERS Safety Report 24168122 (Version 1)
Quarter: 2024Q3

REPORT INFORMATION
  Report Type: Spontaneous
  Country: ES (occurrence: ES)
  Receive Date: 20240802
  Receipt Date: 20240802
  Transmission Date: 20241017
  Serious: Yes (Other)
  Sender: FRESENIUS KABI
  Company Number: None

PATIENT
  Age: 64 Year
  Sex: Male

DRUGS (5)
  1. IDACIO [Suspect]
     Active Substance: ADALIMUMAB-AACF
     Indication: Psoriasis
     Route: 058
     Dates: end: 20240117
  2. IDACIO [Suspect]
     Active Substance: ADALIMUMAB-AACF
     Route: 058
     Dates: start: 20240124, end: 20240418
  3. IDACIO [Suspect]
     Active Substance: ADALIMUMAB-AACF
     Route: 058
     Dates: start: 20240117, end: 202404
  4. IDACIO [Suspect]
     Active Substance: ADALIMUMAB-AACF
     Route: 058
     Dates: start: 20240117, end: 202404
  5. IDACIO [Suspect]
     Active Substance: ADALIMUMAB-AACF
     Route: 058
     Dates: start: 20240117, end: 202404

REACTIONS (2)
  - Cluster headache [Recovered/Resolved]
  - Headache [Recovered/Resolved]

NARRATIVE: CASE EVENT DATE: 20240101
